FAERS Safety Report 5290974-1 (Version None)
Quarter: 2007Q2

REPORT INFORMATION
  Report Type: 
  Country: None (occurrence: None)
  Receive Date: 20070409
  Receipt Date: 20070402
  Transmission Date: 20071010
  Serious: Yes (Other)
  Sender: FDA-Public Use
  Company Number: JP-ROCHE-488362

PATIENT
  Age: 20 Year
  Sex: Male

DRUGS (3)
  1. TAMIFLU [Suspect]
     Indication: INFLUENZA
     Route: 048
     Dates: start: 20070302, end: 20070302
  2. MAO-TO [Concomitant]
     Route: 048
     Dates: start: 20070302, end: 20070305
  3. LYSOZYME HYDROCHLORIDE [Concomitant]
     Route: 048
     Dates: start: 20070302, end: 20070305

REACTIONS (2)
  - DEPRESSION [None]
  - HYPERTHERMIA [None]
